FAERS Safety Report 4961908-1 (Version None)
Quarter: 2006Q1

REPORT INFORMATION
  Report Type: 
  Country: None (occurrence: None)
  Receive Date: 20060329
  Receipt Date: 20060320
  Transmission Date: 20060701
  Serious: Yes (Other)
  Sender: FDA-Public Use
  Company Number: 200512691BWH

PATIENT
  Age: 4 Month
  Sex: Male
  Weight: 6.804 kg

DRUGS (1)
  1. CIPRO XR [Suspect]
     Indication: DRUG EXPOSURE VIA BREAST MILK
     Dosage: TRANSMAMMARY
     Route: 063
     Dates: start: 20050829, end: 20050902

REACTIONS (14)
  - DIARRHOEA HAEMORRHAGIC [None]
  - DRUG EXPOSURE VIA BREAST MILK [None]
  - DYSPEPSIA [None]
  - EAR INFECTION [None]
  - FEELING ABNORMAL [None]
  - FLATULENCE [None]
  - FOOD ALLERGY [None]
  - FOOD INTOLERANCE [None]
  - GROWTH RETARDATION [None]
  - INFANTILE SPITTING UP [None]
  - INFLUENZA [None]
  - INTESTINAL ULCER [None]
  - OESOPHAGEAL ULCER [None]
  - OESOPHAGITIS [None]
